FAERS Safety Report 15882397 (Version 1)
Quarter: 2019Q1

REPORT INFORMATION
  Report Type: Spontaneous
  Country: AU (occurrence: AU)
  Receive Date: 20190129
  Receipt Date: 20190129
  Transmission Date: 20190417
  Serious: Yes (Other)
  Sender: FDA-Public Use
  Company Number: AU-SUN PHARMACEUTICAL INDUSTRIES LTD-2019RR-197009

PATIENT
  Age: 32 Year
  Sex: Male

DRUGS (1)
  1. MINOCYCLINE [Suspect]
     Active Substance: MINOCYCLINE\MINOCYCLINE HYDROCHLORIDE
     Indication: ACNE
     Dosage: 100 MILLIGRAM, DAILY
     Route: 065

REACTIONS (2)
  - Hepatitis [Recovered/Resolved]
  - Polyarteritis nodosa [Recovered/Resolved]
